FAERS Safety Report 10583653 (Version 2)
Quarter: 2014Q4

REPORT INFORMATION
  Report Type: Spontaneous
  Country: IT (occurrence: IT)
  Receive Date: 20141114
  Receipt Date: 20141114
  Transmission Date: 20150529
  Serious: Yes (Life-Threatening)
  Sender: FDA-Public Use
  Company Number: PHHY2014IT064232

PATIENT
  Age: 27 Year
  Sex: Male

DRUGS (1)
  1. CLOZAPINE. [Suspect]
     Active Substance: CLOZAPINE
     Indication: PRODUCT USED FOR UNKNOWN INDICATION
     Dosage: 100 MG, QD
     Route: 048
     Dates: start: 20140414, end: 20140424

REACTIONS (2)
  - Drug ineffective [Unknown]
  - Mental disorder [Unknown]

NARRATIVE: CASE EVENT DATE: 20140424
